FAERS Safety Report 9912037 (Version 2)
Quarter: 2014Q2

REPORT INFORMATION
  Report Type: Spontaneous
  Country: FR (occurrence: FR)
  Receive Date: 20140219
  Receipt Date: 20140401
  Transmission Date: 20141212
  Serious: Yes (Death, Hospitalization, Other)
  Sender: FDA-Public Use
  Company Number: FR-BAXTER-2014BAX007782

PATIENT
  Age: 88 Year
  Sex: Male

DRUGS (6)
  1. ENDOXAN 50 MG, COMPRIM? ENROB? [Suspect]
     Indication: PRODUCT USED FOR UNKNOWN INDICATION
     Route: 048
     Dates: start: 20140116, end: 20140131
  2. BACTRIM FORTE [Suspect]
     Indication: PRODUCT USED FOR UNKNOWN INDICATION
     Route: 048
     Dates: start: 20140116, end: 20140207
  3. OMEPRAZOLE [Suspect]
     Indication: PRODUCT USED FOR UNKNOWN INDICATION
     Dosage: 1 UNIT
     Route: 048
     Dates: start: 20140117, end: 20140207
  4. SOLUPRED [Suspect]
     Indication: PRODUCT USED FOR UNKNOWN INDICATION
     Route: 048
     Dates: start: 20140116, end: 20140131
  5. SOLUPRED [Suspect]
     Route: 065
     Dates: start: 20140201, end: 20140206
  6. ACIDE FOLIQUE [Suspect]
     Indication: PRODUCT USED FOR UNKNOWN INDICATION
     Route: 048
     Dates: start: 20140116, end: 20140207

REACTIONS (6)
  - Pancytopenia [Fatal]
  - Shock haemorrhagic [Fatal]
  - Respiratory arrest [Unknown]
  - Erosive duodenitis [Unknown]
  - Head injury [Unknown]
  - Malaise [Unknown]
